FAERS Safety Report 6384589-1 (Version None)
Quarter: 2009Q4

REPORT INFORMATION
  Report Type: 
  Country: None (occurrence: None)
  Receive Date: 20091001
  Receipt Date: 20090918
  Transmission Date: 20100525
  Serious: Yes (Hospitalization, Other)
  Sender: FDA-Public Use
  Company Number: PHHY2009BR40265

PATIENT
  Age: 45 Year
  Sex: Male

DRUGS (1)
  1. FORASEQ [Suspect]
     Indication: BRONCHITIS
     Dosage: TO USE WHEN REQUIRED

REACTIONS (5)
  - DYSPNOEA [None]
  - FATIGUE [None]
  - INFECTION [None]
  - INFLUENZA [None]
  - PYREXIA [None]
